FAERS Safety Report 22594914 (Version 1)
Quarter: 2023Q2

REPORT INFORMATION
  Report Type: Spontaneous
  Country: US (occurrence: US)
  Receive Date: 20230613
  Receipt Date: 20230613
  Transmission Date: 20230721
  Serious: Yes (Other)
  Sender: FDA-Public Use
  Company Number: US-UCBSA-2023029095

PATIENT
  Age: 22 Year
  Sex: Female
  Weight: 55.4 kg

DRUGS (3)
  1. KEPPRA [Suspect]
     Active Substance: LEVETIRACETAM
     Indication: Seizure
     Dosage: 50 MILLIGRAM 1 TABLET BID
  2. KEPPRA [Suspect]
     Active Substance: LEVETIRACETAM
     Dosage: 1500 MILLIGRAM, 2X/DAY (BID)
     Route: 048
  3. BRIVIACT [Suspect]
     Active Substance: BRIVARACETAM
     Indication: Seizure
     Dosage: 50 MILLIGRAM, 2X/DAY (BID)
     Route: 048

REACTIONS (26)
  - Seizure [Unknown]
  - Hallucination, auditory [Unknown]
  - Hallucination, visual [Unknown]
  - Myalgia [Unknown]
  - Rash [Unknown]
  - Dizziness [Unknown]
  - Mood swings [Unknown]
  - Gait disturbance [Unknown]
  - Insomnia [Unknown]
  - Headache [Unknown]
  - Depression [Unknown]
  - Behaviour disorder [Unknown]
  - Seasonal allergy [Unknown]
  - Pollakiuria [Unknown]
  - Urinary incontinence [Unknown]
  - Mood altered [Unknown]
  - Agitation [Unknown]
  - Affective disorder [Unknown]
  - Head discomfort [Unknown]
  - Dehydration [Unknown]
  - Sleep deficit [Unknown]
  - Blepharospasm [Unknown]
  - Muscle twitching [Unknown]
  - Myoclonus [Unknown]
  - Feeling hot [Unknown]
  - Diplopia [Unknown]

NARRATIVE: CASE EVENT DATE: 20230526
